FAERS Safety Report 21322932 (Version 1)
Quarter: 2022Q3

REPORT INFORMATION
  Report Type: Report from Study
  Country: CA (occurrence: CA)
  Receive Date: 20220912
  Receipt Date: 20220912
  Transmission Date: 20221027
  Serious: Yes (Other)
  Sender: FDA-Public Use
  Company Number: CA-ABBVIE-22K-028-4526724-00

PATIENT
  Sex: Female

DRUGS (1)
  1. RINVOQ [Suspect]
     Active Substance: UPADACITINIB
     Indication: Rheumatoid arthritis
     Route: 048
     Dates: start: 20210822

REACTIONS (7)
  - Arthrodesis [Unknown]
  - Osteoarthritis [Unknown]
  - Fibromyalgia [Unknown]
  - Hand deformity [Unknown]
  - Oral herpes [Unknown]
  - Sinusitis [Unknown]
  - Palatal ulcer [Recovering/Resolving]

NARRATIVE: CASE EVENT DATE: 20220101
